FAERS Safety Report 6634897-1 (Version None)
Quarter: 2010Q1

REPORT INFORMATION
  Report Type: 
  Country: None (occurrence: None)
  Receive Date: 20100225
  Receipt Date: 20100201
  Transmission Date: 20100710
  Serious: No
  Sender: FDA-Public Use
  Company Number: 2010-00221

PATIENT
  Age: 60 Year
  Sex: Female
  Weight: 87.5442 kg

DRUGS (2)
  1. ZICAM INTENSE SINUS RELIEF [Suspect]
     Dosage: QD - ONE DOSE
     Dates: start: 20100130, end: 20100130
  2. PREMARIN [Concomitant]

REACTIONS (1)
  - ANOSMIA [None]
